FAERS Safety Report 12688619 (Version 1)
Quarter: 2016Q3

REPORT INFORMATION
  Report Type: Report from Study
  Country: CH (occurrence: CH)
  Receive Date: 20160826
  Receipt Date: 20160826
  Transmission Date: 20161109
  Serious: Yes (Congenital Anomaly, Other)
  Sender: FDA-Public Use
  Company Number: CH-SUN PHARMACEUTICAL INDUSTRIES LTD-2016RR-122678

PATIENT

DRUGS (8)
  1. IBUPROFEN. [Suspect]
     Active Substance: IBUPROFEN
     Indication: PRODUCT USED FOR UNKNOWN INDICATION
     Dosage: GW 3
     Route: 064
  2. TOLPERISONE [Suspect]
     Active Substance: TOLPERISONE
     Indication: PRODUCT USED FOR UNKNOWN INDICATION
     Dosage: GW 3-4
     Route: 064
  3. METAMIZOLE [Suspect]
     Active Substance: METAMIZOLE
     Indication: PRODUCT USED FOR UNKNOWN INDICATION
     Dosage: GW 3-4
     Route: 064
  4. DICLOFENAC [Suspect]
     Active Substance: DICLOFENAC
     Indication: PRODUCT USED FOR UNKNOWN INDICATION
     Dosage: GW 3
     Route: 064
  5. GUAIFENESINE/CODEINE [Suspect]
     Active Substance: CODEINE\GUAIFENESIN
     Indication: PRODUCT USED FOR UNKNOWN INDICATION
     Dosage: GW 3-4
     Route: 064
  6. FORMETEROL [Suspect]
     Active Substance: FORMOTEROL
     Indication: PRODUCT USED FOR UNKNOWN INDICATION
     Dosage: GW 3
     Route: 064
  7. ACETYLCYSTEIN [Suspect]
     Active Substance: ACETYLCYSTEINE
     Indication: PRODUCT USED FOR UNKNOWN INDICATION
     Dosage: GW 3-4
     Route: 064
  8. PARACETAMOL [Suspect]
     Active Substance: ACETAMINOPHEN
     Indication: PRODUCT USED FOR UNKNOWN INDICATION
     Dosage: GW 3
     Route: 064

REACTIONS (2)
  - Trisomy 21 [Unknown]
  - Foetal exposure during pregnancy [Unknown]
